FAERS Safety Report 5133645-4 (Version None)
Quarter: 2006Q4

REPORT INFORMATION
  Report Type: 
  Country: None (occurrence: None)
  Receive Date: 20061018
  Receipt Date: 20061005
  Transmission Date: 20070319
  Serious: Yes (Hospitalization)
  Sender: FDA-Public Use
  Company Number: 2006123595

PATIENT
  Age: 53 Year
  Sex: Female

DRUGS (1)
  1. LYRICA [Suspect]
     Indication: DIABETIC NEUROPATHY
     Dosage: (300 MG, 2 IN D), ORAL
     Route: 048

REACTIONS (2)
  - FALL [None]
  - MUSCULAR WEAKNESS [None]
